APPROVED DRUG PRODUCT: FLORONE E
Active Ingredient: DIFLORASONE DIACETATE
Strength: 0.05%
Dosage Form/Route: CREAM;TOPICAL
Application: N019259 | Product #001
Applicant: PFIZER INC
Approved: Aug 28, 1985 | RLD: No | RS: No | Type: DISCN